FAERS Safety Report 10340642 (Version 1)
Quarter: 2014Q3

REPORT INFORMATION
  Report Type: Spontaneous
  Country: FR (occurrence: FR)
  Receive Date: 20140724
  Receipt Date: 20140724
  Transmission Date: 20150326
  Serious: Yes (Other)
  Sender: FDA-Public Use
  Company Number: FR-MYLANLABS-2014S1016866

PATIENT
  Age: 67 Year
  Sex: Female

DRUGS (2)
  1. CIDOFOVIR. [Suspect]
     Active Substance: CIDOFOVIR
     Indication: OFF LABEL USE
     Dosage: 4MG/KG EVERY TWO WEEKS
     Route: 042
  2. CIDOFOVIR. [Suspect]
     Active Substance: CIDOFOVIR
     Indication: RESPIRATORY PAPILLOMA
     Dosage: 4MG/KG EVERY TWO WEEKS
     Route: 042

REACTIONS (3)
  - Hypotony of eye [Recovering/Resolving]
  - Pupil fixed [Not Recovered/Not Resolved]
  - Iridocyclitis [Unknown]
